FAERS Safety Report 25095074 (Version 3)
Quarter: 2025Q1

REPORT INFORMATION
  Report Type: Spontaneous
  Country: US (occurrence: US)
  Receive Date: 20250319
  Receipt Date: 20250331
  Transmission Date: 20250409
  Serious: No
  Sender: BAYER HEALTHCARE PHARMACEUTICALS INC.
  Company Number: US-BAYER-2025A036526

PATIENT
  Sex: Female

DRUGS (2)
  1. ESTRADIOL [Suspect]
     Active Substance: ESTRADIOL
     Route: 062
  2. NORETHINDRONE [Concomitant]
     Active Substance: NORETHINDRONE

REACTIONS (2)
  - Device adhesion issue [None]
  - Incorrect dose administered [None]
